FAERS Safety Report 7211008-5 (Version None)
Quarter: 2011Q1

REPORT INFORMATION
  Report Type: 
  Country: None (occurrence: None)
  Receive Date: 20110105
  Receipt Date: 20101230
  Transmission Date: 20110831
  Serious: Yes (Death)
  Sender: FDA-Public Use
  Company Number: B0691633A

PATIENT
  Age: 83 Year
  Sex: Female

DRUGS (2)
  1. ROCEPHIN [Suspect]
     Indication: ENTEROCOCCAL SEPSIS
     Route: 065
     Dates: start: 20100812
  2. CLAMOXYL [Suspect]
     Indication: ENTEROCOCCAL SEPSIS
     Route: 065
     Dates: start: 20100801, end: 20100815

REACTIONS (8)
  - GENERAL PHYSICAL HEALTH DETERIORATION [None]
  - OXYGEN SATURATION DECREASED [None]
  - DIARRHOEA [None]
  - BLOOD PRESSURE DECREASED [None]
  - HYPOTHERMIA [None]
  - MULTI-ORGAN FAILURE [None]
  - CLOSTRIDIUM DIFFICILE COLITIS [None]
  - RASH ERYTHEMATOUS [None]
